FAERS Safety Report 5453163-3 (Version None)
Quarter: 2007Q3

REPORT INFORMATION
  Report Type: 
  Country: None (occurrence: None)
  Receive Date: 20070914
  Receipt Date: 20070904
  Transmission Date: 20080115
  Serious: Yes (Hospitalization, Other)
  Sender: FDA-Public Use
  Company Number: GB-PFIZER INC-2007074248

PATIENT
  Age: 58 Year
  Sex: Male

DRUGS (6)
  1. AMLODIPINE [Suspect]
  2. SIMVASTATIN [Interacting]
     Indication: HYPERCHOLESTEROLAEMIA
  3. BISOPROLOL [Concomitant]
  4. RAMIPRIL [Concomitant]
  5. SPIRONOLACTONE [Concomitant]
  6. WARFARIN SODIUM [Concomitant]

REACTIONS (4)
  - DRUG INTERACTION [None]
  - GUILLAIN-BARRE SYNDROME [None]
  - RECTAL HAEMORRHAGE [None]
  - RENAL FAILURE [None]
